FAERS Safety Report 9127904 (Version 1)
Quarter: 2013Q1

REPORT INFORMATION
  Report Type: Spontaneous
  Country: US (occurrence: US)
  Receive Date: 20130228
  Receipt Date: 20130228
  Transmission Date: 20140127
  Serious: No
  Sender: FDA-Public Use
  Company Number: US-BRISTOL-MYERS SQUIBB COMPANY-17328360

PATIENT
  Age: 48 Year
  Sex: Male

DRUGS (3)
  1. KOMBIGLYZE XR [Suspect]
     Dates: start: 20130126
  2. ASPIRIN [Concomitant]
  3. PLAVIX [Concomitant]

REACTIONS (2)
  - Nausea [Unknown]
  - Abdominal pain upper [Unknown]
